FAERS Safety Report 7633924-2 (Version None)
Quarter: 2011Q3

REPORT INFORMATION
  Report Type: 
  Country: None (occurrence: None)
  Receive Date: 20110725
  Receipt Date: 20110713
  Transmission Date: 20111222
  Serious: Yes (Other)
  Sender: FDA-Public Use
  Company Number: JP-JNJFOC-20110706505

PATIENT
  Sex: Male
  Weight: 69 kg

DRUGS (34)
  1. POLARAMINE NOS [Concomitant]
     Route: 042
     Dates: start: 20100407, end: 20100407
  2. POLARAMINE NOS [Concomitant]
     Indication: PROPHYLAXIS
     Route: 042
     Dates: start: 20100407, end: 20100407
  3. FLOMOX [Concomitant]
     Indication: CELLULITIS
     Route: 048
  4. REMICADE [Suspect]
     Route: 042
     Dates: start: 20100728
  5. COLCHICINE [Concomitant]
     Indication: BEHCET'S SYNDROME
     Route: 048
     Dates: start: 20080304, end: 20080918
  6. POLARAMINE NOS [Concomitant]
     Indication: RASH
     Route: 042
     Dates: start: 20100728, end: 20100728
  7. POLARAMINE NOS [Concomitant]
     Route: 042
     Dates: start: 20091216, end: 20091216
  8. STEROIDS NOS [Concomitant]
     Dates: start: 20100602, end: 20100602
  9. ALESION [Concomitant]
     Indication: PROPHYLAXIS
     Route: 048
  10. COLCHICINE [Concomitant]
     Route: 048
     Dates: start: 20090618
  11. KENALOG [Concomitant]
     Indication: BEHCET'S SYNDROME
     Dosage: AS NEEDED BASIS
     Dates: start: 20090326
  12. POLARAMINE NOS [Concomitant]
     Route: 042
     Dates: start: 20100602, end: 20100602
  13. POLARAMINE NOS [Concomitant]
     Route: 042
     Dates: start: 20091104, end: 20091104
  14. STEROIDS NOS [Concomitant]
     Indication: PROPHYLAXIS
     Dates: start: 20100210, end: 20100210
  15. REMICADE [Suspect]
     Dosage: INFUSION #7
     Route: 042
     Dates: start: 20090521, end: 20090521
  16. FLUMETHOLON [Concomitant]
     Dosage: BOTH EYES 4 TIMES A DAY
     Route: 031
     Dates: start: 20090905
  17. POLARAMINE NOS [Concomitant]
     Route: 042
     Dates: start: 20090715, end: 20090715
  18. XALATAN [Concomitant]
     Indication: GLAUCOMA
     Route: 031
  19. REMICADE [Suspect]
     Indication: BEHCET'S SYNDROME
     Dosage: TOTAL 7 INFUSIONS
     Route: 042
     Dates: start: 20090715
  20. REMICADE [Suspect]
     Dosage: TOTAL 6 INFUSIONS
     Route: 042
     Dates: start: 20080814, end: 20090326
  21. POLARAMINE NOS [Concomitant]
     Route: 042
     Dates: start: 20090909, end: 20090909
  22. POLARAMINE NOS [Concomitant]
     Indication: OEDEMA
     Route: 048
  23. FLUMETHOLON [Concomitant]
     Indication: BEHCET'S SYNDROME
     Dosage: BOTH EYES 3 TIMES A DAY
     Route: 031
     Dates: start: 20080205, end: 20090904
  24. POLARAMINE NOS [Concomitant]
     Route: 042
     Dates: start: 20100210, end: 20100210
  25. POLARAMINE NOS [Concomitant]
     Route: 042
     Dates: start: 20090909, end: 20090909
  26. POLARAMINE NOS [Concomitant]
     Route: 042
     Dates: start: 20090715, end: 20090715
  27. POLARAMINE NOS [Concomitant]
     Route: 042
     Dates: start: 20091216, end: 20091216
  28. POLARAMINE NOS [Concomitant]
     Route: 042
     Dates: start: 20100728, end: 20100728
  29. POLARAMINE NOS [Concomitant]
     Route: 042
     Dates: start: 20100602, end: 20100602
  30. POLARAMINE NOS [Concomitant]
     Route: 042
     Dates: start: 20100210, end: 20100210
  31. STEROIDS NOS [Concomitant]
     Dates: start: 20100728, end: 20100728
  32. STEROIDS NOS [Concomitant]
     Dates: start: 20100407, end: 20100407
  33. POLARAMINE NOS [Concomitant]
     Route: 042
     Dates: start: 20091104, end: 20091104
  34. LEVOFLOXACIN [Concomitant]
     Indication: PROPHYLAXIS
     Route: 031

REACTIONS (5)
  - GASTROENTERITIS [None]
  - OEDEMA [None]
  - RASH [None]
  - CELLULITIS [None]
  - VITREOUS HAEMORRHAGE [None]
